FAERS Safety Report 9528479 (Version 1)
Quarter: 2013Q1

REPORT INFORMATION
  Report Type: Spontaneous
  Country: US (occurrence: None)
  Receive Date: 20130314
  Receipt Date: 20130314
  Transmission Date: 20140127
  Serious: No
  Sender: FDA-Public Use
  Company Number: 1208USA008241

PATIENT
  Age: 58 Year
  Sex: Male
  Weight: 70.3 kg

DRUGS (3)
  1. PEG-INTRON (PEGINTERFERON ALFA-2B) POWDER FOR INJECTION [Suspect]
     Indication: HEPATITIS C
     Dosage: 0.5 MICROGRAM, UNK
     Dates: start: 20120803
  2. RIBAVIRIN (RIBAVIRIN) CAPSULE [Suspect]
     Dosage: UNK, ORAL
     Route: 048
     Dates: start: 20120813
  3. VICTRELIS (BOCEPREVIR) CAPSULE [Suspect]
     Indication: HEPATITIS C
     Dosage: UNK, ORAL
     Dates: start: 20120910

REACTIONS (13)
  - Pain [None]
  - Injection site rash [None]
  - Weight decreased [None]
  - Pollakiuria [None]
  - Pyrexia [None]
  - Fatigue [None]
  - White blood cell count decreased [None]
  - Neutrophil count decreased [None]
  - Injection site reaction [None]
  - Decreased appetite [None]
  - Injection site inflammation [None]
  - Pain [None]
  - Injection site erythema [None]
